FAERS Safety Report 20602567 (Version 2)
Quarter: 2022Q2

REPORT INFORMATION
  Report Type: Spontaneous
  Country: US (occurrence: None)
  Receive Date: 20220316
  Receipt Date: 20220505
  Transmission Date: 20220721
  Serious: No
  Sender: FDA-Public Use
  Company Number: 2022A108660

PATIENT
  Age: 53 Year
  Sex: Female
  Weight: 68 kg

DRUGS (2)
  1. BUDESONIDE\FORMOTEROL\GLYCOPYRRONIUM [Suspect]
     Active Substance: BUDESONIDE\FORMOTEROL\GLYCOPYRRONIUM
     Indication: Asthma
     Dosage: 160/9/4.8MCG, 2PUFFS, TWICE A DAY
     Route: 055
     Dates: start: 202107
  2. BUDESONIDE\FORMOTEROL\GLYCOPYRRONIUM [Suspect]
     Active Substance: BUDESONIDE\FORMOTEROL\GLYCOPYRRONIUM
     Indication: Asthma
     Dosage: 160/9/4.8MCG, ONE PUFF IN THE AM AND ONE PUFF PM
     Route: 055

REACTIONS (4)
  - COVID-19 [Recovering/Resolving]
  - Condition aggravated [Unknown]
  - Wrong technique in device usage process [Unknown]
  - Device delivery system issue [Unknown]

NARRATIVE: CASE EVENT DATE: 20210701
